FAERS Safety Report 23148510 (Version 1)
Quarter: 2023Q4

REPORT INFORMATION
  Report Type: Report from Study
  Country: IN (occurrence: IN)
  Receive Date: 20231106
  Receipt Date: 20231106
  Transmission Date: 20240109
  Serious: Yes (Other)
  Sender: FDA-Public Use
  Company Number: IN-UCBSA-2023051731

PATIENT
  Age: 22 Year
  Sex: Male

DRUGS (2)
  1. KEPPRA [Suspect]
     Active Substance: LEVETIRACETAM
     Indication: Seizure
     Dosage: 250 MILLIGRAM, 2X/DAY (BID)
     Route: 048
     Dates: start: 20231011, end: 202310
  2. KEPPRA [Suspect]
     Active Substance: LEVETIRACETAM
     Dosage: ONCE DAILY (QD)
     Route: 048
     Dates: start: 202310, end: 202310

REACTIONS (3)
  - Seizure [Recovered/Resolved]
  - Mental disorder [Recovered/Resolved]
  - Off label use [Unknown]

NARRATIVE: CASE EVENT DATE: 20231001
